FAERS Safety Report 25038919 (Version 1)
Quarter: 2025Q1

REPORT INFORMATION
  Report Type: Spontaneous
  Country: US (occurrence: US)
  Receive Date: 20250305
  Receipt Date: 20250305
  Transmission Date: 20250409
  Serious: Yes (Other)
  Sender: CONCORD BIOTECH LTD
  Company Number: US-CBL-002364

PATIENT
  Age: 38 Year
  Sex: Female

DRUGS (17)
  1. MYCOPHENOLATE MOFETIL [Suspect]
     Active Substance: MYCOPHENOLATE MOFETIL
     Indication: Renal transplant
     Dosage: EXPOSED TILL 1ST TRIMESTER OF PREGNANCY, DAILY DOSE: 1000MG
     Route: 048
     Dates: start: 20170924, end: 20230918
  2. AMLODIPINE [Concomitant]
     Active Substance: AMLODIPINE BESYLATE
     Indication: Hypertension
     Dosage: EXPOSED TILL 2ND TRIMESTER OF PREGNANCY
     Route: 065
  3. BELATACEPT [Concomitant]
     Active Substance: BELATACEPT
     Indication: Renal transplant
     Dosage: EXPOSED TILL 1ST TRIMESTER OF PREGNANCY
     Route: 042
     Dates: start: 202008, end: 20230918
  4. COREG [Concomitant]
     Active Substance: CARVEDILOL
     Indication: Hypertension
     Dosage: EXPOSED TILL 2ND TRIMESTER OF PREGNANCY
     Route: 065
  5. PREDNISONE [Concomitant]
     Active Substance: PREDNISONE
     Indication: Renal transplant
     Dosage: EXPOSED TILL 2ND TRIMESTER OF PREGNANCY
     Route: 065
  6. PEGLOTICASE [Concomitant]
     Active Substance: PEGLOTICASE
     Indication: Gout
     Dosage: EXPOSED TILL 1ST TRIMESTER OF PREGNANCY
     Route: 065
     Dates: end: 202310
  7. ENVARSUS XR [Concomitant]
     Active Substance: TACROLIMUS
     Indication: Renal transplant
     Dosage: EXPOSED TILL 1ST TRIMESTER OF PREGNANCY
     Route: 065
     Dates: start: 20170924, end: 20230918
  8. TRAZODONE [Concomitant]
     Active Substance: TRAZODONE HYDROCHLORIDE
     Indication: Sleep disorder
     Dosage: EXPOSED TILL 2ND TRIMESTER OF PREGNANCY
     Route: 065
  9. OMEPRAZOLE [Concomitant]
     Active Substance: OMEPRAZOLE
     Indication: Gastrooesophageal reflux disease
     Dosage: EXPOSED TILL 2ND TRIMESTER OF PREGNANCY
     Route: 065
  10. FLEXERIL [Concomitant]
     Active Substance: CYCLOBENZAPRINE HYDROCHLORIDE
     Indication: Muscle relaxant therapy
     Dosage: EXPOSED TILL 2ND TRIMESTER OF PREGNANCY
     Route: 065
  11. CARVEDILOL [Concomitant]
     Active Substance: CARVEDILOL
     Indication: Blood pressure measurement
     Dosage: DRUG EXPOSURE TILL 1ST WEEK OF GESTATIONAL PERIOD
     Route: 065
     Dates: start: 20230612
  12. BELATACEPT [Concomitant]
     Active Substance: BELATACEPT
     Indication: Immunosuppression
     Dosage: EXPOSED TILL 1ST TRIMESTER OF PREGNANCY, ONGOING
     Route: 042
     Dates: start: 20200806
  13. MYCOPHENOLATE MOFETIL [Suspect]
     Active Substance: MYCOPHENOLATE MOFETIL
     Indication: Immunosuppression
     Dosage: EXPOSED TILL 0 TRIMESTER OF PREGNANCY, DAILY DOSE: 1000MG
     Route: 048
     Dates: start: 20170924, end: 20230918
  14. ENVARSUS XR [Concomitant]
     Active Substance: TACROLIMUS
     Indication: Immunosuppression
     Dosage: EXPOSED TILL 1ST TRIMESTER OF PREGNANCY, ONGOING
     Route: 065
     Dates: start: 20170924
  15. PREDNISONE [Concomitant]
     Active Substance: PREDNISONE
     Indication: Immunosuppression
     Dosage: EXPOSED TILL 2ND TRIMESTER OF PREGNANCY, ONGOING
     Route: 065
     Dates: start: 20170924
  16. PEGLOTICASE [Concomitant]
     Active Substance: PEGLOTICASE
     Indication: Gout
     Dosage: EXPOSED TILL 1ST TRIMESTER OF PREGNANCY
     Route: 065
     Dates: start: 20220928, end: 20231009
  17. AMLODIPINE [Concomitant]
     Active Substance: AMLODIPINE BESYLATE
     Indication: Blood pressure measurement
     Dosage: EXPOSED TILL 2ND TRIMESTER OF PREGNANCY, ONGOING
     Route: 065
     Dates: start: 20230222

REACTIONS (2)
  - Exposure during pregnancy [Unknown]
  - Abortion spontaneous [Recovered/Resolved]

NARRATIVE: CASE EVENT DATE: 20230101
